FAERS Safety Report 5494553-2 (Version None)
Quarter: 2007Q4

REPORT INFORMATION
  Report Type: 
  Country: None (occurrence: None)
  Receive Date: 20071022
  Receipt Date: 20071012
  Transmission Date: 20080405
  Serious: Yes (Other)
  Sender: FDA-Public Use
  Company Number: 2007SP020872

PATIENT
  Age: 52 Year
  Sex: Female

DRUGS (3)
  1. PEG-INTRON [Suspect]
     Indication: HEPATITIS C
     Dosage: SC
     Route: 058
     Dates: start: 20070926
  2. RIBASPHERE [Suspect]
     Indication: HEPATITIS C
     Dosage: PO
     Route: 048
     Dates: start: 20070926
  3. SEROQUEL [Concomitant]

REACTIONS (9)
  - ASTHENIA [None]
  - CONTUSION [None]
  - HAEMORRHAGE [None]
  - INJECTION SITE ERYTHEMA [None]
  - LETHARGY [None]
  - MEMORY IMPAIRMENT [None]
  - PARAESTHESIA [None]
  - PRURITUS [None]
  - SOMNOLENCE [None]
